FAERS Safety Report 19354029 (Version 3)
Quarter: 2021Q4

REPORT INFORMATION
  Report Type: Report from Study
  Country: KR (occurrence: KR)
  Receive Date: 20210602
  Receipt Date: 20211115
  Transmission Date: 20220303
  Serious: Yes (Hospitalization, Other)
  Sender: FDA-Public Use
  Company Number: KR-KYOWAKIRIN-2021AKK008963

PATIENT
  Age: 55 Year
  Sex: Male

DRUGS (43)
  1. FILGRASTIM [Suspect]
     Active Substance: FILGRASTIM
     Indication: Product used for unknown indication
     Dosage: UNK, QD (300)
     Route: 065
     Dates: start: 20160808, end: 20160811
  2. APREPITANT [Concomitant]
     Active Substance: APREPITANT
     Indication: Product used for unknown indication
     Dosage: 150 MILLIGRAM, QD
     Route: 065
     Dates: start: 20160802, end: 20160802
  3. APREPITANT [Concomitant]
     Active Substance: APREPITANT
     Dosage: 150 MILLIGRAM, QD
     Route: 065
     Dates: start: 20160823, end: 20160823
  4. APREPITANT [Concomitant]
     Active Substance: APREPITANT
     Dosage: 150 MILLIGRAM, QD
     Route: 065
     Dates: start: 20160920, end: 20160920
  5. CARVEDILOL [Concomitant]
     Active Substance: CARVEDILOL
     Indication: Product used for unknown indication
     Dosage: 25 MILLIGRAM, QD
     Route: 065
     Dates: start: 20160823, end: 20160921
  6. CHLORPHENIRAMINE MALEATE [Concomitant]
     Active Substance: CHLORPHENIRAMINE MALEATE
     Indication: Product used for unknown indication
     Dosage: 4 MILLIGRAM, QD
     Route: 065
     Dates: start: 20160802, end: 20160802
  7. CHLORPHENIRAMINE MALEATE [Concomitant]
     Active Substance: CHLORPHENIRAMINE MALEATE
     Dosage: 4 MILLIGRAM, QD
     Route: 065
     Dates: start: 20160823, end: 20160823
  8. CHLORPHENIRAMINE MALEATE [Concomitant]
     Active Substance: CHLORPHENIRAMINE MALEATE
     Dosage: 4 MILLIGRAM, QD
     Route: 065
     Dates: start: 20160920, end: 20160920
  9. CISPLATIN [Concomitant]
     Active Substance: CISPLATIN
     Indication: Product used for unknown indication
     Dosage: 109.2 MILLIGRAM, QD
     Route: 065
     Dates: start: 20160823, end: 20160823
  10. CISPLATIN [Concomitant]
     Active Substance: CISPLATIN
     Dosage: 109.8 MILLIGRAM, QD
     Route: 065
     Dates: start: 20160802, end: 20160802
  11. CISPLATIN [Concomitant]
     Active Substance: CISPLATIN
     Dosage: 109.2 MILLIGRAM, QD
     Route: 065
     Dates: start: 20160920, end: 20160920
  12. CODEINE;DICLOFENAC [Concomitant]
     Indication: Product used for unknown indication
     Dosage: UNK, QD (2)
     Route: 065
     Dates: start: 20160808, end: 20160821
  13. DEXAMETHASONE [Concomitant]
     Active Substance: DEXAMETHASONE
     Indication: Product used for unknown indication
     Dosage: 4 MILLIGRAM, QD
     Route: 065
     Dates: start: 20160803, end: 20160805
  14. DEXAMETHASONE [Concomitant]
     Active Substance: DEXAMETHASONE
     Dosage: 4 MILLIGRAM, QD
     Route: 065
     Dates: start: 20160824, end: 20200826
  15. DEXAMETHASONE [Concomitant]
     Active Substance: DEXAMETHASONE
     Dosage: 5 MILLIGRAM, QD
     Route: 065
     Dates: start: 20160922, end: 20160923
  16. DEXAMETHASONE [Concomitant]
     Active Substance: DEXAMETHASONE
     Dosage: 12 MILLIGRAM, QD
     Route: 065
     Dates: start: 20160920, end: 20160920
  17. DEXAMETHASONE [Concomitant]
     Active Substance: DEXAMETHASONE
     Dosage: 20 MILLIGRAM, QD
     Route: 065
     Dates: start: 20160802, end: 20160802
  18. DEXAMETHASONE [Concomitant]
     Active Substance: DEXAMETHASONE
     Dosage: 20 MILLIGRAM, QD
     Route: 065
     Dates: start: 20160823, end: 20160823
  19. FAMOTIDINE [Concomitant]
     Active Substance: FAMOTIDINE
     Indication: Product used for unknown indication
     Dosage: 20 MILLIGRAM, QD
     Route: 065
     Dates: start: 20160921, end: 20160928
  20. FENTANYL [Concomitant]
     Active Substance: FENTANYL
     Indication: Product used for unknown indication
     Dosage: UNK, QD (20)
     Route: 065
     Dates: start: 20160921, end: 20160928
  21. FENTANYL [Concomitant]
     Active Substance: FENTANYL
     Dosage: UNK, QD (25)
     Route: 065
     Dates: start: 20160328
  22. FERROUS SULFATE [Concomitant]
     Active Substance: FERROUS SULFATE
     Indication: Product used for unknown indication
     Dosage: 1 DOSAGE FORM, QD
     Route: 065
     Dates: start: 20160810, end: 20161006
  23. FUROSEMIDE [Concomitant]
     Active Substance: FUROSEMIDE
     Indication: Product used for unknown indication
     Dosage: 20 MILLIGRAM, QD
     Route: 065
     Dates: start: 20160802, end: 20160802
  24. FUROSEMIDE [Concomitant]
     Active Substance: FUROSEMIDE
     Dosage: 20 MILLIGRAM, QD
     Route: 065
     Dates: start: 20160823, end: 20160823
  25. GRANISETRON [Concomitant]
     Active Substance: GRANISETRON
     Dosage: UNK UNK, QD (1)
     Route: 065
     Dates: start: 20160801, end: 20160807
  26. GRANISETRON [Concomitant]
     Active Substance: GRANISETRON
     Dosage: UNK UNK, QD (1)
     Route: 065
     Dates: start: 20160822, end: 20160828
  27. GRANISETRON [Concomitant]
     Active Substance: GRANISETRON
     Dosage: UNK UNK, QD (1)
     Route: 065
     Dates: start: 20160919, end: 20160925
  28. MORPHINE [Concomitant]
     Active Substance: MORPHINE
     Indication: Product used for unknown indication
     Dosage: 3 MILLIGRAM, QD
     Route: 065
     Dates: start: 20160921, end: 20160923
  29. PACLITAXEL [Concomitant]
     Active Substance: PACLITAXEL
     Indication: Product used for unknown indication
     Dosage: 318.5 MILLIGRAM, QD
     Route: 065
     Dates: start: 20160823, end: 20160823
  30. PACLITAXEL [Concomitant]
     Active Substance: PACLITAXEL
     Dosage: 320 MILLIGRAM, QD
     Route: 065
     Dates: start: 20160802, end: 20160802
  31. PACLITAXEL [Concomitant]
     Active Substance: PACLITAXEL
     Dosage: 322 MILLIGRAM, QD
     Route: 065
     Dates: start: 20160802, end: 20160920
  32. PREGABALIN [Concomitant]
     Active Substance: PREGABALIN
     Indication: Product used for unknown indication
     Dosage: UNK, QD (1)
     Route: 065
     Dates: start: 20160808, end: 20160828
  33. PREGABALIN [Concomitant]
     Active Substance: PREGABALIN
     Dosage: UNK, QD (1)
     Route: 065
     Dates: start: 20160829, end: 20161103
  34. RANITIDINE [Concomitant]
     Active Substance: RANITIDINE
     Indication: Product used for unknown indication
     Dosage: 50 MILLIGRAM, QD
     Route: 065
     Dates: start: 20160802, end: 20160802
  35. RANITIDINE [Concomitant]
     Active Substance: RANITIDINE
     Dosage: 50 MILLIGRAM, QD
     Route: 065
     Dates: start: 20160823, end: 20160823
  36. RANITIDINE [Concomitant]
     Active Substance: RANITIDINE
     Dosage: 50 MILLIGRAM, QD
     Route: 065
     Dates: start: 20160920, end: 20160920
  37. RANITIDINE [Concomitant]
     Active Substance: RANITIDINE
     Dosage: 50 MILLIGRAM, QD
     Route: 065
     Dates: start: 20160922, end: 20160923
  38. RANITIDINE [Concomitant]
     Active Substance: RANITIDINE
     Dosage: 150 MILLIGRAM, QD
     Route: 065
     Dates: start: 20160803, end: 20160805
  39. RANITIDINE [Concomitant]
     Active Substance: RANITIDINE
     Dosage: 150 MILLIGRAM, QD
     Route: 065
     Dates: start: 20160824, end: 20160826
  40. TRANEXAMIC ACID [Concomitant]
     Active Substance: TRANEXAMIC ACID
     Indication: Product used for unknown indication
     Dosage: 500 MILLIGRAM, QD
     Route: 065
     Dates: start: 20160922, end: 20161001
  41. URSODIOL [Concomitant]
     Active Substance: URSODIOL
     Indication: Product used for unknown indication
     Dosage: 200 MILLIGRAM, QD
     Route: 065
     Dates: start: 20160316, end: 20160731
  42. DARBEPOETIN ALFA [Concomitant]
     Active Substance: DARBEPOETIN ALFA
     Indication: Product used for unknown indication
     Dosage: UNK UNK, QD (480)
     Route: 065
     Dates: start: 20160823, end: 20160823
  43. DARBEPOETIN ALFA [Concomitant]
     Active Substance: DARBEPOETIN ALFA
     Dosage: UNK UNK, QD (500)
     Route: 065
     Dates: start: 20160802, end: 20160802

REACTIONS (1)
  - Gastric haemorrhage [Recovered/Resolved]

NARRATIVE: CASE EVENT DATE: 20160922
